FAERS Safety Report 8724205 (Version 2)
Quarter: 2012Q4

REPORT INFORMATION
  Report Type: 
  Country: JP (occurrence: JP)
  Receive Date: 20120815
  Receipt Date: 20120906
  Transmission Date: 20130627
  Serious: Yes (Life-Threatening)
  Sender: FDA-Public Use
  Company Number: JP-PFIZER INC-2012193741

PATIENT
  Age: 82 Year
  Sex: Female

DRUGS (3)
  1. LYRICA [Suspect]
     Indication: POST HERPETIC NEURALGIA
     Dosage: 75 mg, 1x/day
     Route: 048
     Dates: start: 20120630
  2. IRBETAN [Interacting]
     Indication: HYPERTENSION
     Dosage: 100 mg, 1x/day
     Route: 048
     Dates: start: 20120514
  3. CALONAL [Concomitant]
     Indication: POST HERPETIC NEURALGIA
     Dosage: 400 mg, as needed
     Route: 048
     Dates: start: 20120514

REACTIONS (3)
  - Drug interaction [Unknown]
  - Shock [Recovered/Resolved]
  - Blood pressure decreased [Recovered/Resolved]
